FAERS Safety Report 25661964 (Version 6)
Quarter: 2025Q4

REPORT INFORMATION
  Report Type: Spontaneous
  Country: JP (occurrence: JP)
  Receive Date: 20250809
  Receipt Date: 20251121
  Transmission Date: 20260117
  Serious: Yes (Hospitalization)
  Sender: AMGEN
  Company Number: JP-AMGEN-JPNSP2025154528

PATIENT
  Age: 83 Year
  Sex: Female
  Weight: 47 kg

DRUGS (18)
  1. EVENITY [Suspect]
     Active Substance: ROMOSOZUMAB-AQQG
     Indication: Osteoporosis
     Dosage: 210 MILLIGRAM, QMO
     Route: 058
     Dates: start: 20250501, end: 20250718
  2. EVENITY [Suspect]
     Active Substance: ROMOSOZUMAB-AQQG
     Indication: Compression fracture
  3. DENOSUMAB [Suspect]
     Active Substance: DENOSUMAB
     Indication: Osteoporosis
     Dosage: 60 MILLIGRAM, Q6MO
     Route: 065
     Dates: start: 20171207, end: 20250213
  4. CALONAL [Concomitant]
     Active Substance: ACETAMINOPHEN
     Indication: Compression fracture
     Dosage: 3 DOSAGE FORM, AS NECESSARY
     Dates: start: 20250418
  5. LIPITOR [Concomitant]
     Active Substance: ATORVASTATIN CALCIUM
     Indication: Dyslipidaemia
     Dosage: 1 DOSAGE FORM, QD
     Dates: start: 20160524
  6. ONEALFA [Concomitant]
     Active Substance: ALFACALCIDOL
     Indication: Osteoporosis
     Dosage: 1 DOSAGE FORM, QD
     Dates: start: 20220120
  7. DICLOFENAC [Concomitant]
     Active Substance: DICLOFENAC
     Indication: Compression fracture
     Dosage: 25 MILLIGRAM, AS NECESSARY
     Dates: start: 20250418
  8. LOXOPROFEN SODIUM [Concomitant]
     Active Substance: LOXOPROFEN SODIUM
     Indication: Rotator cuff syndrome
     Dosage: TAPE, 1 SHEET
     Dates: start: 20210719
  9. LOXOPROFEN SODIUM [Concomitant]
     Active Substance: LOXOPROFEN SODIUM
     Indication: Rotator cuff syndrome
  10. LOXOPROFEN SODIUM [Concomitant]
     Active Substance: LOXOPROFEN SODIUM
     Indication: Compression fracture
  11. RIVOTRIL [Concomitant]
     Active Substance: CLONAZEPAM
     Indication: Focal dyscognitive seizures
     Dosage: 0.5 MILLIGRAM, AS NECESSARY
     Dates: start: 20230823
  12. SODIUM HYALURONATE [Concomitant]
     Active Substance: HYALURONATE SODIUM
     Indication: Rotator cuff syndrome
     Dosage: UNK
     Dates: start: 20221220
  13. XYLOCAINE [Concomitant]
     Active Substance: LIDOCAINE HYDROCHLORIDE
     Indication: Rotator cuff syndrome
     Dosage: 1 MILLIGRAM FOR PAIN
     Dates: start: 20221220
  14. ELDECALCITOL [Concomitant]
     Active Substance: ELDECALCITOL
     Dosage: 0.75 MCG 1C
  15. CALCIUM ASPARTATE [Concomitant]
     Active Substance: CALCIUM ASPARTATE
     Dosage: CA 200 1T
  16. MINODRONIC ACID [Concomitant]
     Active Substance: MINODRONIC ACID
     Dosage: UNK
  17. ASPARTIC ACID [Concomitant]
     Active Substance: ASPARTIC ACID
     Dosage: 200 UNK
  18. ELDECALCITOL [Concomitant]
     Active Substance: ELDECALCITOL
     Dosage: (0.75) 1C/TIME

REACTIONS (3)
  - Atypical fracture [Unknown]
  - Musculoskeletal pain [Recovered/Resolved]
  - Chest pain [Recovered/Resolved]

NARRATIVE: CASE EVENT DATE: 20250523
